FAERS Safety Report 9140130 (Version 2)
Quarter: 2013Q1

REPORT INFORMATION
  Report Type: Spontaneous
  Country: IT (occurrence: IT)
  Receive Date: 20130305
  Receipt Date: 20130312
  Transmission Date: 20140127
  Serious: Yes (Hospitalization)
  Sender: FDA-Public Use
  Company Number: IT-ABBOTT-13X-083-1057812-00

PATIENT
  Age: 36 Year
  Sex: Female

DRUGS (4)
  1. DEPAKINE [Suspect]
     Indication: DRUG ABUSE
     Route: 048
     Dates: start: 20130114, end: 20130114
  2. CITALOPRAM [Suspect]
     Indication: DRUG ABUSE
     Route: 048
     Dates: start: 20130114, end: 20130114
  3. LORAZEPAM [Suspect]
     Indication: DRUG ABUSE
     Route: 048
     Dates: start: 20130114, end: 20130114
  4. ZOLPIDEM TARTRATE [Suspect]
     Indication: DRUG ABUSE
     Route: 048
     Dates: start: 20130114, end: 20130114

REACTIONS (3)
  - Mydriasis [Unknown]
  - Suicide attempt [Unknown]
  - Sopor [Unknown]
